FAERS Safety Report 14620850 (Version 1)
Quarter: 2018Q1

REPORT INFORMATION
  Report Type: Spontaneous
  Country: SG (occurrence: SG)
  Receive Date: 20180309
  Receipt Date: 20180309
  Transmission Date: 20180509
  Serious: Yes (Hospitalization)
  Sender: FDA-Public Use
  Company Number: SG-NOVAST LABORATORIES, LTD-SG-2018NOV000127

PATIENT
  Age: 36 Year
  Sex: Male

DRUGS (1)
  1. BUTALBITAL, ACETAMINOPHEN, AND CAFFEINE [Suspect]
     Active Substance: ACETAMINOPHEN\BUTALBITAL\CAFFEINE
     Indication: MIGRAINE
     Dosage: 7.5 G, UNK

REACTIONS (5)
  - Accidental overdose [Unknown]
  - Sepsis [Unknown]
  - Gastroenteritis [Unknown]
  - Hepatotoxicity [Unknown]
  - Hepatitis acute [Unknown]
